FAERS Safety Report 6693163-9 (Version None)
Quarter: 2010Q2

REPORT INFORMATION
  Report Type: 
  Country: None (occurrence: None)
  Receive Date: 20100422
  Receipt Date: 20100415
  Transmission Date: 20101027
  Serious: Yes (Other)
  Sender: FDA-Public Use
  Company Number: GB-B.I. PHARMACEUTICALS,INC./RIDGEFIELD-2010-BP-04378BP

PATIENT
  Age: 38 Year
  Sex: Female

DRUGS (2)
  1. VIRAMUNE [Suspect]
     Indication: ANTIVIRAL TREATMENT
     Dosage: 0.5 MG
     Route: 048
     Dates: start: 20080819, end: 20090806
  2. VIREAD [Suspect]
     Indication: ANTIVIRAL TREATMENT
     Dosage: 245 MG
     Route: 048
     Dates: start: 20090806

REACTIONS (1)
  - ABORTION SPONTANEOUS [None]
